FAERS Safety Report 16084344 (Version 4)
Quarter: 2019Q2

REPORT INFORMATION
  Report Type: Report from Study
  Country: JP (occurrence: JP)
  Receive Date: 20190318
  Receipt Date: 20190410
  Transmission Date: 20190711
  Serious: Yes (Other)
  Sender: FDA-Public Use
  Company Number: JP-ROCHE-2285251

PATIENT
  Age: 67 Year
  Sex: Male

DRUGS (6)
  1. PROCARBAZINE [Suspect]
     Active Substance: PROCARBAZINE
     Indication: CENTRAL NERVOUS SYSTEM LYMPHOMA
     Dosage: ON DAY 2-8 DURING ODD NUMBERED CYCLES ONLY.
     Route: 065
  2. VINCRISTINE [Suspect]
     Active Substance: VINCRISTINE
     Indication: CENTRAL NERVOUS SYSTEM LYMPHOMA
     Dosage: ON DAY 2
     Route: 065
  3. CYTARABINE. [Suspect]
     Active Substance: CYTARABINE
     Indication: CENTRAL NERVOUS SYSTEM LYMPHOMA
     Dosage: 2 G/M^2 (FOR TWO CYCLES)
     Route: 065
  4. METHOTREXATE. [Suspect]
     Active Substance: METHOTREXATE
     Indication: CENTRAL NERVOUS SYSTEM LYMPHOMA
     Dosage: 3 G/M^2 ON DAY 2
     Route: 042
  5. LEUCOVORIN. [Concomitant]
     Active Substance: LEUCOVORIN
  6. RITUXIMAB. [Suspect]
     Active Substance: RITUXIMAB
     Indication: CENTRAL NERVOUS SYSTEM LYMPHOMA
     Dosage: ON DAY 1
     Route: 041

REACTIONS (6)
  - Sepsis [Recovered/Resolved]
  - Neutropenia [Unknown]
  - Neuropathy peripheral [Unknown]
  - Aspartate aminotransferase increased [Unknown]
  - Pulmonary embolism [Recovered/Resolved]
  - Alanine aminotransferase increased [Unknown]
